FAERS Safety Report 14719403 (Version 1)
Quarter: 2018Q2

REPORT INFORMATION
  Report Type: Other
  Country: DE (occurrence: DE)
  Receive Date: 20180405
  Receipt Date: 20180405
  Transmission Date: 20180711
  Serious: No
  Sender: FDA-Public Use
  Company Number: DE-LUPIN PHARMACEUTICALS INC.-2018-00151

PATIENT
  Age: 59 Year
  Sex: Female

DRUGS (2)
  1. DULOXETINE. [Suspect]
     Active Substance: DULOXETINE
     Indication: MAJOR DEPRESSION
     Dosage: UP TO 60 MG DAILY DOSE
     Route: 065
     Dates: start: 20171026, end: 20171214
  2. DULOXETINE. [Suspect]
     Active Substance: DULOXETINE
     Indication: PAIN

REACTIONS (2)
  - Visual impairment [Unknown]
  - Maculopathy [Unknown]

NARRATIVE: CASE EVENT DATE: 2017
